FAERS Safety Report 6655722-9 (Version None)
Quarter: 2010Q1

REPORT INFORMATION
  Report Type: 
  Country: None (occurrence: None)
  Receive Date: 20100317
  Receipt Date: 20100127
  Transmission Date: 20100710
  Serious: No
  Sender: FDA-Public Use
  Company Number: DSA_42499_2010

PATIENT
  Sex: Female

DRUGS (10)
  1. XENAZINE [Suspect]
     Indication: HUNTINGTON'S CHOREA
     Dosage: 25 MG TID ORAL, 12.5 MG TID ORAL
     Route: 048
     Dates: start: 20091201, end: 20100101
  2. XENAZINE [Suspect]
     Indication: MENTAL DISORDER
     Dosage: 25 MG TID ORAL, 12.5 MG TID ORAL
     Route: 048
     Dates: start: 20091201, end: 20100101
  3. XENAZINE [Suspect]
     Indication: HUNTINGTON'S CHOREA
     Dosage: 25 MG TID ORAL, 12.5 MG TID ORAL
     Route: 048
     Dates: start: 20100101
  4. XENAZINE [Suspect]
     Indication: MENTAL DISORDER
     Dosage: 25 MG TID ORAL, 12.5 MG TID ORAL
     Route: 048
     Dates: start: 20100101
  5. SEROQUEL [Concomitant]
  6. RISPERDAL [Concomitant]
  7. PROZAC [Concomitant]
  8. RISPERDAL CONSTA [Concomitant]
  9. COGENTIN [Concomitant]
  10. MULTIPLE VITAMINS [Concomitant]

REACTIONS (2)
  - CONFUSIONAL STATE [None]
  - SPEECH DISORDER [None]
